FAERS Safety Report 5030171-8 (Version None)
Quarter: 2006Q2

REPORT INFORMATION
  Report Type: 
  Country: None (occurrence: None)
  Receive Date: 20060620
  Receipt Date: 20020204
  Transmission Date: 20061013
  Serious: Yes (Death, Life-Threatening, Other)
  Sender: FDA-Public Use
  Company Number: PHBS2002JP01761

PATIENT
  Age: 65 Year
  Sex: Male

DRUGS (6)
  1. GLEEVEC [Suspect]
     Indication: CHRONIC MYELOID LEUKAEMIA
     Dosage: 400 MG, QD
     Route: 048
     Dates: start: 20020107, end: 20020123
  2. MABLIN [Suspect]
     Dosage: 1 MG, QD
     Route: 048
     Dates: start: 20020208, end: 20020212
  3. METHYLPREDNISOLONE SODIUM SUCCINATE [Suspect]
     Dosage: 500 MG/D
     Dates: start: 20020218
  4. METHYLPREDNISOLONE SODIUM SUCCINATE [Suspect]
     Dosage: 500 MG/D
     Dates: start: 20020307
  5. PREDONINE [Suspect]
     Dosage: 40 MG/D
     Route: 048
  6. PREDONINE [Suspect]
     Dosage: 60 MG/D
     Route: 048

REACTIONS (18)
  - CEREBRAL INFARCTION [None]
  - COUGH [None]
  - DEPRESSED LEVEL OF CONSCIOUSNESS [None]
  - DYSPNOEA EXERTIONAL [None]
  - FACE OEDEMA [None]
  - HERPES ZOSTER [None]
  - HYPOXIA [None]
  - INTERSTITIAL LUNG DISEASE [None]
  - PARALYSIS [None]
  - PNEUMOCYSTIS JIROVECI PNEUMONIA [None]
  - PNEUMONIA ASPIRATION [None]
  - PYREXIA [None]
  - RASH [None]
  - RESPIRATORY FAILURE [None]
  - RESTLESSNESS [None]
  - THROMBOCYTOPENIA [None]
  - TONGUE COATED [None]
  - VASCULITIS [None]
